FAERS Safety Report 6162729-7 (Version None)
Quarter: 2009Q2

REPORT INFORMATION
  Report Type: 
  Country: None (occurrence: None)
  Receive Date: 20090421
  Receipt Date: 20080404
  Transmission Date: 20091009
  Serious: Yes (Other)
  Sender: FDA-Public Use
  Company Number: US-ASTRAZENECA-2008UW06910

PATIENT
  Sex: Male

DRUGS (2)
  1. TOPROL-XL [Suspect]
     Indication: ARRHYTHMIA
     Route: 048
  2. ADVIL [Concomitant]
     Indication: ARTHRITIS

REACTIONS (3)
  - BALANCE DISORDER [None]
  - DEPRESSION [None]
  - FATIGUE [None]
